FAERS Safety Report 22644469 (Version 1)
Quarter: 2023Q2

REPORT INFORMATION
  Report Type: Spontaneous
  Country: US (occurrence: US)
  Receive Date: 20230627
  Receipt Date: 20230627
  Transmission Date: 20230721
  Serious: No
  Sender: FDA-Public Use
  Company Number: US-BRISTOL-MYERS SQUIBB COMPANY-2023-089604

PATIENT
  Age: 54 Year
  Sex: Female
  Weight: 95.7 kg

DRUGS (1)
  1. REVLIMID [Suspect]
     Active Substance: LENALIDOMIDE
     Indication: Plasma cell myeloma
     Route: 048

REACTIONS (5)
  - Blood pressure abnormal [Unknown]
  - Paraesthesia [Unknown]
  - Body temperature increased [Unknown]
  - Abscess [Unknown]
  - Peripheral swelling [Unknown]
